FAERS Safety Report 9562681 (Version 1)
Quarter: 2013Q3

REPORT INFORMATION
  Report Type: Spontaneous
  Country: US (occurrence: US)
  Receive Date: 20130927
  Receipt Date: 20130927
  Transmission Date: 20140515
  Serious: No
  Sender: FDA-Public Use
  Company Number: US-PFIZER INC-2013276001

PATIENT
  Sex: Male

DRUGS (1)
  1. DEPO-TESTOSTERONE [Suspect]
     Dosage: UNK

REACTIONS (6)
  - Pyrexia [Unknown]
  - Chills [Unknown]
  - Pain in extremity [Unknown]
  - Back pain [Unknown]
  - Malaise [Unknown]
  - Viral infection [Unknown]
